FAERS Safety Report 7579302-6 (Version None)
Quarter: 2011Q2

REPORT INFORMATION
  Report Type: 
  Country: None (occurrence: None)
  Receive Date: 20110628
  Receipt Date: 20110620
  Transmission Date: 20111010
  Serious: Yes (Other)
  Sender: FDA-Public Use
  Company Number: US-BAYER-2011-053865

PATIENT
  Age: 73 Year
  Sex: Male
  Weight: 73 kg

DRUGS (3)
  1. ALLOPURINOL [Concomitant]
  2. NAPROXEN (ALEVE) [Suspect]
     Dosage: 2 DF, QD
     Route: 048
     Dates: start: 20110401, end: 20110619
  3. ATENOLOL [Concomitant]

REACTIONS (2)
  - PRURITUS [None]
  - BLISTER [None]
